FAERS Safety Report 5984183-8 (Version None)
Quarter: 2008Q4

REPORT INFORMATION
  Report Type: 
  Country: None (occurrence: None)
  Receive Date: 20081208
  Receipt Date: 20080912
  Transmission Date: 20090506
  Serious: Yes (Other)
  Sender: FDA-Public Use
  Company Number: US-AMGEN-QUU304713

PATIENT
  Sex: Female
  Weight: 86.7 kg

DRUGS (3)
  1. ENBREL [Suspect]
     Indication: RHEUMATOID ARTHRITIS
     Route: 058
     Dates: start: 20030401, end: 20080801
  2. ULTRAM [Concomitant]
  3. MULTI-VITAMINS [Concomitant]

REACTIONS (17)
  - B-CELL LYMPHOMA [None]
  - DECREASED APPETITE [None]
  - DEPRESSION [None]
  - DIARRHOEA [None]
  - DYSPHONIA [None]
  - DYSPNOEA [None]
  - GASTRIC BYPASS [None]
  - INCREASED TENDENCY TO BRUISE [None]
  - JOINT STIFFNESS [None]
  - OEDEMA PERIPHERAL [None]
  - PAIN IN EXTREMITY [None]
  - PARANASAL SINUS HYPERSECRETION [None]
  - POLLAKIURIA [None]
  - RECTAL HAEMORRHAGE [None]
  - SINUSITIS [None]
  - STREPTOCOCCAL INFECTION [None]
  - STRESS [None]
